FAERS Safety Report 9270307 (Version 2)
Quarter: 2014Q1

REPORT INFORMATION
  Report Type: Spontaneous
  Country: US (occurrence: US)
  Receive Date: 20130503
  Receipt Date: 20140320
  Transmission Date: 20141002
  Serious: Yes (Hospitalization, Disabling, Other)
  Sender: FDA-Public Use
  Company Number: US-009507513-1305USA000400

PATIENT
  Sex: Male
  Weight: 103.18 kg

DRUGS (5)
  1. PROSCAR [Suspect]
     Indication: ALOPECIA
     Dosage: 5 MG, 1/4 TAB DAILY
     Route: 048
     Dates: start: 20030624, end: 200707
  2. PROPECIA [Suspect]
     Dosage: UNK
     Route: 048
     Dates: start: 20030604
  3. FINASTERIDE [Suspect]
     Indication: ALOPECIA
     Dosage: 5 MG, 1/4 TAB DAILY
     Route: 048
     Dates: start: 20061222, end: 20120712
  4. TUMS [Concomitant]
  5. VITAMINS (UNSPECIFIED) [Concomitant]

REACTIONS (32)
  - Migraine without aura [Not Recovered/Not Resolved]
  - Sleep apnoea syndrome [Unknown]
  - Palatal operation [Unknown]
  - Asthenia [Unknown]
  - Drug administration error [Unknown]
  - Epididymal cyst [Unknown]
  - Optic disc disorder [Unknown]
  - Fatigue [Unknown]
  - Migraine without aura [Unknown]
  - Dyslipidaemia [Unknown]
  - Intervertebral disc protrusion [Unknown]
  - Plantar fascial fibromatosis [Unknown]
  - Blood testosterone decreased [Unknown]
  - Muscle atrophy [Unknown]
  - Myalgia [Unknown]
  - Muscle spasms [Unknown]
  - Cochlea implant [Unknown]
  - Chest discomfort [Unknown]
  - Chest pain [Unknown]
  - Dyspnoea at rest [Unknown]
  - Nausea [Unknown]
  - Microlithiasis [Unknown]
  - Hydrocele [Unknown]
  - Upper respiratory tract infection [Unknown]
  - Cough [Unknown]
  - Dizziness [Unknown]
  - Joint injury [Unknown]
  - Epicondylitis [Unknown]
  - Ligament sprain [Unknown]
  - Sexual dysfunction [Not Recovered/Not Resolved]
  - Erectile dysfunction [Not Recovered/Not Resolved]
  - Libido decreased [Unknown]
